FAERS Safety Report 6166384-1 (Version None)
Quarter: 2009Q2

REPORT INFORMATION
  Report Type: 
  Country: None (occurrence: None)
  Receive Date: 20090424
  Receipt Date: 20081107
  Transmission Date: 20091009
  Serious: No
  Sender: FDA-Public Use
  Company Number: A0755410A

PATIENT
  Age: 62 Year
  Sex: Female

DRUGS (2)
  1. DEXTROAMPHETAMINE [Suspect]
     Indication: DEPRESSION
     Dosage: 15MG UNKNOWN
     Route: 048
     Dates: start: 20081023
  2. UNKNOWN [Concomitant]

REACTIONS (1)
  - DEPRESSION [None]
